FAERS Safety Report 23167306 (Version 1)
Quarter: 2023Q4

REPORT INFORMATION
  Report Type: Spontaneous
  Country: US (occurrence: US)
  Receive Date: 20231109
  Receipt Date: 20231109
  Transmission Date: 20240110
  Serious: Yes (Other)
  Sender: FDA-Public Use
  Company Number: US-NAPPMUNDI-GBR-2023-0112048

PATIENT
  Age: 2 Week
  Sex: Male

DRUGS (1)
  1. BUPRENORPHINE [Suspect]
     Active Substance: BUPRENORPHINE
     Indication: Product used for unknown indication
     Dosage: 8 MILLIGRAM, BID FOR SEVERAL MONTHS
     Route: 063

REACTIONS (5)
  - Feeding disorder [Unknown]
  - Somnolence [Unknown]
  - Miosis [Unknown]
  - Lethargy [Unknown]
  - Drug withdrawal syndrome [Unknown]
